FAERS Safety Report 7713812-3 (Version None)
Quarter: 2011Q3

REPORT INFORMATION
  Report Type: 
  Country: None (occurrence: None)
  Receive Date: 20110826
  Receipt Date: 20110822
  Transmission Date: 20111222
  Serious: Yes (Other)
  Sender: FDA-Public Use
  Company Number: US-PFIZER INC-2011195322

PATIENT
  Sex: Female

DRUGS (2)
  1. DILANTIN [Suspect]
     Indication: CONVULSION
     Dosage: 4 TABLETS ONCE DAILY
  2. DILANTIN [Suspect]
     Dosage: 3 TABLETS

REACTIONS (2)
  - CONVULSION [None]
  - SOMNOLENCE [None]
